FAERS Safety Report 10768247 (Version 1)
Quarter: 2015Q1

REPORT INFORMATION
  Report Type: Spontaneous
  Country: CA (occurrence: CA)
  Receive Date: 20150206
  Receipt Date: 20150206
  Transmission Date: 20150721
  Serious: Yes (Death)
  Sender: FDA-Public Use
  Company Number: CA-ROCHE-1533021

PATIENT
  Age: 67 Year
  Sex: Male
  Weight: 95 kg

DRUGS (7)
  1. MAVIK [Concomitant]
     Active Substance: TRANDOLAPRIL
  2. LIPITOR [Concomitant]
     Active Substance: ATORVASTATIN CALCIUM
     Route: 065
  3. VITAMIN B12 [Concomitant]
     Active Substance: CYANOCOBALAMIN
  4. DILTIAZEM [Concomitant]
     Active Substance: DILTIAZEM
  5. XELODA [Suspect]
     Active Substance: CAPECITABINE
     Indication: COLON CANCER STAGE III
     Dosage: THERAPY DURATION: 12 DAYS
     Route: 048
  6. ZANTAC [Concomitant]
     Active Substance: RANITIDINE HYDROCHLORIDE
  7. ASA [Concomitant]
     Active Substance: ASPIRIN

REACTIONS (9)
  - Diarrhoea [Fatal]
  - Intestinal obstruction [Fatal]
  - Endotracheal intubation [Fatal]
  - Mucosal haemorrhage [Fatal]
  - Mucosal inflammation [Fatal]
  - Pruritus [Fatal]
  - Gastrointestinal stoma complication [Fatal]
  - Ileus [Fatal]
  - Lip swelling [Fatal]
